FAERS Safety Report 9030756 (Version 2)
Quarter: 2013Q2

REPORT INFORMATION
  Report Type: Report from Study
  Country: BR (occurrence: BR)
  Receive Date: 20130123
  Receipt Date: 20130403
  Transmission Date: 20140414
  Serious: Yes (Hospitalization)
  Sender: FDA-Public Use
  Company Number: BR-ACTELION-A-CH2013-78158

PATIENT
  Age: 57 Year
  Sex: Male

DRUGS (7)
  1. TRACLEER [Suspect]
     Indication: PULMONARY ARTERIAL HYPERTENSION
     Dosage: 125 MG, BID
     Route: 048
  2. AMITRIPTILINA [Concomitant]
     Dosage: 12.5 MG, UNK
     Dates: start: 2011
  3. METOTREXATE [Concomitant]
     Dosage: 20 MG, UNK
     Dates: start: 2011
  4. SIMVASTATIN [Concomitant]
     Dosage: 20 MG, UNK
     Dates: start: 2010
  5. RISPERIDONA [Concomitant]
     Dosage: 1 MG, UNK
     Dates: start: 20111201
  6. SILDENAFIL [Concomitant]
     Dosage: UNK
     Dates: start: 20091221
  7. FUROSEMIDE [Concomitant]
     Dosage: UNK
     Dates: start: 20091221

REACTIONS (2)
  - Pulmonary embolism [Recovered/Resolved with Sequelae]
  - Ventricular tachycardia [Recovered/Resolved]
